FAERS Safety Report 19453768 (Version 2)
Quarter: 2021Q4

REPORT INFORMATION
  Report Type: Report from Study
  Country: ES (occurrence: ES)
  Receive Date: 20210623
  Receipt Date: 20211001
  Transmission Date: 20220304
  Serious: Yes (Hospitalization)
  Sender: FDA-Public Use
  Company Number: ES-GLAXOSMITHKLINE-ES2021103911

PATIENT
  Age: 54 Year
  Sex: Female

DRUGS (5)
  1. SOTROVIMAB [Suspect]
     Active Substance: SOTROVIMAB
     Indication: COVID-19
     Dosage: UNK
     Dates: start: 20210510
  2. SOTROVIMAB [Suspect]
     Active Substance: SOTROVIMAB
     Indication: COVID-19
     Dosage: UNK
     Dates: start: 20210510
  3. ACETAMINOPHEN [Concomitant]
     Active Substance: ACETAMINOPHEN
     Indication: COVID-19
     Dosage: 650 MG, PRN
     Route: 048
     Dates: start: 20210507
  4. DEXTROMETORFAN [Concomitant]
     Indication: COVID-19 pneumonia
     Dosage: 20 DF, TID
     Route: 048
     Dates: start: 20210517, end: 20210525
  5. ENOXAPARIN [Concomitant]
     Active Substance: ENOXAPARIN
     Indication: COVID-19 pneumonia
     Dosage: 40 MG, 1D
     Route: 058
     Dates: start: 20210515, end: 20210526

REACTIONS (1)
  - Coronavirus pneumonia [Recovered/Resolved]

NARRATIVE: CASE EVENT DATE: 20210514
